FAERS Safety Report 5527901-5 (Version None)
Quarter: 2007Q4

REPORT INFORMATION
  Report Type: 
  Country: None (occurrence: None)
  Receive Date: 20071126
  Receipt Date: 20071126
  Transmission Date: 20080405
  Serious: Yes (Other)
  Sender: FDA-Public Use
  Company Number: None

PATIENT
  Age: 30 Year
  Sex: Female
  Weight: 61.2356 kg

DRUGS (3)
  1. FLUCONAZOLE [Suspect]
     Indication: FUNGAL INFECTION
     Dosage: 1 TABLET  1 DOSE
     Dates: start: 20061201
  2. FLUCONAZOLE [Suspect]
     Indication: FUNGAL INFECTION
     Dosage: 1 TABLET  1 DOSE
     Dates: start: 20070301
  3. FLUCONAZOLE [Suspect]
     Indication: FUNGAL INFECTION
     Dosage: 1 TABLET  1 DOSE
     Dates: start: 20071123

REACTIONS (1)
  - DRUG HYPERSENSITIVITY [None]
